FAERS Safety Report 10938214 (Version 2)
Quarter: 2015Q2

REPORT INFORMATION
  Report Type: Spontaneous
  Country: US (occurrence: US)
  Receive Date: 20150321
  Receipt Date: 20150525
  Transmission Date: 20150821
  Serious: No
  Sender: FDA-Public Use
  Company Number: US-JNJFOC-20131207481

PATIENT
  Age: 30 Year
  Sex: Male
  Weight: 131.54 kg

DRUGS (3)
  1. HALDOL [Concomitant]
     Active Substance: HALOPERIDOL
     Indication: DEPRESSION
     Route: 065
     Dates: start: 2005
  2. STELARA [Suspect]
     Active Substance: USTEKINUMAB
     Indication: PSORIASIS
     Route: 058
     Dates: start: 2012
  3. DEPAKOTE [Concomitant]
     Active Substance: DIVALPROEX SODIUM
     Indication: DEPRESSION
     Route: 048
     Dates: start: 2005

REACTIONS (1)
  - Drug dose omission [Not Recovered/Not Resolved]

NARRATIVE: CASE EVENT DATE: 201312
